FAERS Safety Report 7732825-9 (Version None)
Quarter: 2011Q3

REPORT INFORMATION
  Report Type: 
  Country: None (occurrence: None)
  Receive Date: 20110901
  Receipt Date: 20110818
  Transmission Date: 20111222
  Serious: Yes (Other)
  Sender: FDA-Public Use
  Company Number: AUR-APL-2011-04458

PATIENT
  Age: 28 Year
  Sex: Male

DRUGS (7)
  1. RITONAVIR [Suspect]
     Indication: HIV INFECTION
  2. CORTICOSTEROIDS (CORTICOSTEROIDS) [Suspect]
  3. DARUNAVIR HYDRATE [Suspect]
     Indication: HIV INFECTION
  4. LAMIVUDINE [Suspect]
     Indication: HIV INFECTION
  5. ZIDOVUDINE [Suspect]
     Indication: HIV INFECTION
  6. CEFOTAXIME SODIUM [Concomitant]
  7. ACYCLOVIR [Concomitant]

REACTIONS (1)
  - MEMORY IMPAIRMENT [None]
